FAERS Safety Report 11266037 (Version 1)
Quarter: 2015Q3

REPORT INFORMATION
  Report Type: Spontaneous
  Country: US (occurrence: US)
  Receive Date: 20150713
  Receipt Date: 20150713
  Transmission Date: 20151125
  Serious: Yes (Hospitalization)
  Sender: FDA-Public Use
  Company Number: US-MPIJNJ-2012-09221

PATIENT
  Sex: Male
  Weight: 76.65 kg

DRUGS (2)
  1. VELCADE [Suspect]
     Active Substance: BORTEZOMIB
     Dosage: UNK
     Route: 058
     Dates: start: 20121101, end: 20121206
  2. VELCADE [Suspect]
     Active Substance: BORTEZOMIB
     Indication: PLASMA CELL MYELOMA
     Dosage: UNK UNK, CYCLIC
     Route: 042
     Dates: start: 20121101, end: 20121206

REACTIONS (3)
  - Pneumonia [Unknown]
  - Malaise [Unknown]
  - Chest pain [Unknown]
